FAERS Safety Report 5947335-9 (Version None)
Quarter: 2008Q4

REPORT INFORMATION
  Report Type: 
  Country: None (occurrence: None)
  Receive Date: 20081110
  Receipt Date: 20081031
  Transmission Date: 20090506
  Serious: Yes (Hospitalization)
  Sender: FDA-Public Use
  Company Number: US-PFIZER INC-2008091774

PATIENT
  Sex: Male
  Weight: 90.3 kg

DRUGS (1)
  1. MARAVIROC [Suspect]
     Indication: HIV INFECTION
     Route: 048
     Dates: start: 20050707

REACTIONS (1)
  - ACUTE MYOCARDIAL INFARCTION [None]
